FAERS Safety Report 18007995 (Version 7)
Quarter: 2022Q1

REPORT INFORMATION
  Report Type: Spontaneous
  Country: US (occurrence: US)
  Receive Date: 20200710
  Receipt Date: 20220120
  Transmission Date: 20220423
  Serious: No
  Sender: FDA-Public Use
  Company Number: US-PFIZER INC-2020265246

PATIENT
  Age: 80 Year
  Sex: Male

DRUGS (7)
  1. INLYTA [Suspect]
     Active Substance: AXITINIB
     Dosage: 5 MG
     Dates: start: 20200605, end: 202006
  2. INLYTA [Suspect]
     Active Substance: AXITINIB
     Dosage: 5 MG
     Dates: start: 20200608, end: 202006
  3. INLYTA [Suspect]
     Active Substance: AXITINIB
     Dosage: 5 MG
     Dates: start: 20200610
  4. INLYTA [Suspect]
     Active Substance: AXITINIB
     Dosage: 5 MG
     Dates: start: 20200606
  5. INLYTA [Suspect]
     Active Substance: AXITINIB
     Dosage: 5 MG
     Dates: start: 20200605
  6. INLYTA [Suspect]
     Active Substance: AXITINIB
     Dosage: 5 MG
     Dates: start: 20201001
  7. INLYTA [Suspect]
     Active Substance: AXITINIB
     Dosage: 5 MG
     Dates: start: 20201101

REACTIONS (7)
  - Diarrhoea [Unknown]
  - Throat irritation [Unknown]
  - Pruritus [Unknown]
  - Scratch [Unknown]
  - Palmar-plantar erythrodysaesthesia syndrome [Unknown]
  - Skin infection [Unknown]
  - Blister [Unknown]

NARRATIVE: CASE EVENT DATE: 20200101
